FAERS Safety Report 8249181 (Version 10)
Quarter: 2013Q4

REPORT INFORMATION
  Report Type: Report from Study
  Country: ES (occurrence: ES)
  Receive Date: 20111117
  Receipt Date: 20131208
  Transmission Date: 20140711
  Serious: Yes (Hospitalization)
  Sender: FDA-Public Use
  Company Number: ES-SANOFI-AVENTIS-2011SA071996

PATIENT
  Age: 70 Year
  Sex: Male
  Weight: 93.5 kg

DRUGS (29)
  1. DOCETAXEL [Suspect]
     Indication: NEOPLASM
     Route: 042
     Dates: start: 20111005
  2. DOCETAXEL [Suspect]
     Indication: NEOPLASM
     Route: 042
     Dates: start: 20111024
  3. BLINDED THERAPY [Suspect]
     Indication: NEOPLASM
     Route: 048
     Dates: start: 20111006
  4. OMEPRAZOLE [Concomitant]
     Indication: PROPHYLAXIS AGAINST GASTROINTESTINAL ULCER
     Dates: start: 2007
  5. BISOPROLOL [Concomitant]
     Indication: HYPERTENSION
     Dates: start: 2006
  6. BISOPROLOL [Concomitant]
     Indication: THROMBOSIS
     Dates: start: 2006
  7. SUTRIL [Concomitant]
     Indication: HYPERTENSION
     Dates: start: 2006, end: 20111022
  8. SUTRIL [Concomitant]
     Indication: THROMBOSIS
     Dates: start: 2006, end: 20111022
  9. AAS [Concomitant]
     Indication: THROMBOSIS
     Dates: start: 2006
  10. OMACOR [Concomitant]
     Indication: HYPERCHOLESTEROLAEMIA
     Dosage: DOSE:1 UNIT(S)
     Dates: start: 2006
  11. ACOVIL [Concomitant]
     Indication: HYPERTENSION
     Dates: start: 2006
  12. ACOVIL [Concomitant]
     Indication: THROMBOSIS
     Dates: start: 2006
  13. TIMOFTOL [Concomitant]
     Indication: OCULAR HYPERTENSION
     Dosage: DROP
  14. ATORVASTATIN [Concomitant]
     Indication: HYPERCHOLESTEROLAEMIA
     Dates: start: 2006
  15. HEPARIN [Concomitant]
     Indication: THROMBOSIS PROPHYLAXIS
     Dosage: DOSE:3500 UNIT(S)
  16. LORMETAZEPAM [Concomitant]
     Indication: INSOMNIA
  17. NATECAL [Concomitant]
     Indication: HYPOCALCAEMIA
     Dates: start: 20111009
  18. NATECAL [Concomitant]
     Indication: HYPOCALCAEMIA
     Dates: start: 20111010
  19. LYRICA [Concomitant]
     Indication: PAIN
     Dates: start: 2007
  20. TRAMADOL [Concomitant]
     Indication: ANALGESIC THERAPY
  21. NOLOTIL [Concomitant]
     Indication: PAIN
     Dosage: DOSE:1 UNIT(S)
  22. PARACETAMOL [Concomitant]
     Indication: PAIN
  23. ONDANSETRON [Concomitant]
     Dates: start: 20101005, end: 20111122
  24. FUROSEMIDA [Concomitant]
     Indication: HYPERTENSION
     Dosage: DOSE:1 UNIT(S)
  25. FUROSEMIDA [Concomitant]
     Indication: OEDEMA
     Dosage: DOSE:1 UNIT(S)
  26. PRIMPERAN [Concomitant]
     Indication: PROPHYLAXIS OF NAUSEA AND VOMITING
     Dates: start: 20111006
  27. NITROPLAST [Concomitant]
     Dates: start: 2006
  28. OXYCODONE HYDROCHLORIDE [Concomitant]
     Dosage: DOSE:1 UNIT(S)
     Dates: start: 201111
  29. DEXAMETHASONE [Concomitant]
     Dates: start: 20111005, end: 20111122

REACTIONS (5)
  - Hypocalcaemia [Recovered/Resolved]
  - Hypophosphataemia [Recovered/Resolved]
  - Hypokalaemia [Recovered/Resolved]
  - Neutropenia [Recovered/Resolved]
  - Diarrhoea [Recovered/Resolved]
